FAERS Safety Report 14927605 (Version 2)
Quarter: 2018Q2

REPORT INFORMATION
  Report Type: Spontaneous
  Country: US (occurrence: US)
  Receive Date: 20180523
  Receipt Date: 20180601
  Transmission Date: 20180711
  Serious: No
  Sender: FDA-Public Use
  Company Number: US-BAYER-2018-097865

PATIENT
  Age: 19 Year
  Sex: Female

DRUGS (3)
  1. LAMOTRIGINE. [Concomitant]
     Active Substance: LAMOTRIGINE
  2. CLARITIN [Suspect]
     Active Substance: LORATADINE
     Dosage: 2 DF, IN LESS THAN 24 HOURS
     Route: 048
     Dates: start: 20180521, end: 20180522
  3. ZONISAMIDE. [Concomitant]
     Active Substance: ZONISAMIDE

REACTIONS (2)
  - Inappropriate schedule of drug administration [Unknown]
  - Nasal congestion [None]

NARRATIVE: CASE EVENT DATE: 20180521
